FAERS Safety Report 7719567-0 (Version None)
Quarter: 2011Q3

REPORT INFORMATION
  Report Type: 
  Country: None (occurrence: None)
  Receive Date: 20110830
  Receipt Date: 20110808
  Transmission Date: 20111222
  Serious: Yes (Hospitalization)
  Sender: FDA-Public Use
  Company Number: US-BAYER-200929755NA

PATIENT
  Age: 42 Year
  Sex: Female
  Weight: 113.38 kg

DRUGS (9)
  1. ADVIL LIQUI-GELS [Concomitant]
  2. YASMIN [Suspect]
     Indication: CONTRACEPTION
     Dosage: UNK
     Dates: start: 20040601, end: 20060501
  3. YAZ [Suspect]
     Indication: CONTRACEPTION
     Dosage: UNK
     Dates: start: 20060501, end: 20070801
  4. VICODIN [Concomitant]
  5. IBUPROFEN [Concomitant]
     Indication: INFLAMMATION
     Dosage: 600 MG, TID
     Route: 048
  6. PROPRANOLOL [Concomitant]
  7. PRILOSEC [Concomitant]
     Indication: DYSPEPSIA
  8. CRANBERRY [Concomitant]
     Indication: URINARY TRACT INFECTION
  9. MOTRIN [Concomitant]
     Dosage: UNK
     Dates: start: 20051229, end: 20080401

REACTIONS (4)
  - PAIN IN EXTREMITY [None]
  - DEEP VEIN THROMBOSIS [None]
  - OEDEMA PERIPHERAL [None]
  - PHLEBITIS [None]
